FAERS Safety Report 8427903-5 (Version None)
Quarter: 2012Q2

REPORT INFORMATION
  Report Type: 
  Country: None (occurrence: None)
  Receive Date: 20120611
  Receipt Date: 20120529
  Transmission Date: 20120825
  Serious: Yes (Death)
  Sender: FDA-Public Use
  Company Number: CA-ROCHE-1073421

PATIENT
  Age: 77 Year
  Sex: Female

DRUGS (6)
  1. HYDROCHLOROTHIAZIDE [Concomitant]
     Route: 065
  2. LANSOPRAZOLE [Concomitant]
     Route: 048
  3. XELODA [Suspect]
     Indication: PRODUCT USED FOR UNKNOWN INDICATION
     Route: 065
  4. ALENDRONATE SODIUM [Concomitant]
     Route: 048
  5. ATACAND [Concomitant]
     Route: 065
  6. PROCHLORPERAZINE [Concomitant]
     Route: 065

REACTIONS (16)
  - NAUSEA [None]
  - WHITE BLOOD CELL COUNT INCREASED [None]
  - BLOOD CALCIUM DECREASED [None]
  - FAECAL INCONTINENCE [None]
  - HYPOKALAEMIA [None]
  - NEUTROPHIL COUNT INCREASED [None]
  - HYPOCALCAEMIA [None]
  - BLOOD UREA INCREASED [None]
  - INTERNATIONAL NORMALISED RATIO INCREASED [None]
  - BLOOD SODIUM DECREASED [None]
  - DIARRHOEA [None]
  - ASTHENIA [None]
  - BLOOD POTASSIUM DECREASED [None]
  - BLOOD CREATININE INCREASED [None]
  - BLOOD ELECTROLYTES ABNORMAL [None]
  - SYNCOPE [None]
